FAERS Safety Report 7799499-2 (Version None)
Quarter: 2011Q4

REPORT INFORMATION
  Report Type: 
  Country: None (occurrence: None)
  Receive Date: 20111006
  Receipt Date: 20110929
  Transmission Date: 20120403
  Serious: Yes (Disabling)
  Sender: FDA-Public Use
  Company Number: PHHO2011AU16559

PATIENT
  Sex: Female
  Weight: 79 kg

DRUGS (1)
  1. CERTICAN [Suspect]
     Dosage: 10 MG, QD
     Route: 048
     Dates: start: 20110601, end: 20110914

REACTIONS (4)
  - DIARRHOEA [None]
  - FATIGUE [None]
  - WHEEZING [None]
  - MUCOSAL INFLAMMATION [None]
